FAERS Safety Report 15471456 (Version 1)
Quarter: 2018Q4

REPORT INFORMATION
  Report Type: Spontaneous
  Country: JP (occurrence: JP)
  Receive Date: 20181007
  Receipt Date: 20181007
  Transmission Date: 20190205
  Serious: Yes (Other)
  Sender: FDA-Public Use
  Company Number: JP-TEVA-2018-JP-002043J

PATIENT
  Sex: Female

DRUGS (4)
  1. PREDNISOLONE TABLETS 5MG. [Suspect]
     Active Substance: PREDNISOLONE
     Dosage: 10 MILLIGRAM DAILY;
     Route: 048
  2. PREDNISOLONE TABLETS 5MG. [Suspect]
     Active Substance: PREDNISOLONE
     Indication: COLLAGEN DISORDER
     Dosage: 40 MILLIGRAM DAILY;
     Route: 048
  3. AZULFIDINE EN-TABS [Concomitant]
     Active Substance: SULFASALAZINE
     Route: 048
     Dates: start: 20180425
  4. CELECOX [Concomitant]
     Active Substance: CELECOXIB
     Route: 065

REACTIONS (7)
  - Sepsis [Unknown]
  - Drug effect incomplete [Unknown]
  - Swelling face [Unknown]
  - Arthralgia [Unknown]
  - Insomnia [Unknown]
  - Joint swelling [Unknown]
  - Steroid diabetes [Unknown]
